FAERS Safety Report 16089296 (Version 1)
Quarter: 2019Q1

REPORT INFORMATION
  Report Type: Spontaneous
  Country: FR (occurrence: FR)
  Receive Date: 20190319
  Receipt Date: 20190319
  Transmission Date: 20190418
  Serious: Yes (Other)
  Sender: FDA-Public Use
  Company Number: FR-BAYER-2019-049350

PATIENT
  Sex: Female

DRUGS (3)
  1. LENVATINIB [Concomitant]
     Active Substance: LENVATINIB
  2. NEXAVAR [Suspect]
     Active Substance: SORAFENIB
     Indication: HEPATOCELLULAR CARCINOMA
     Dosage: 800 MG, QD
     Dates: start: 201302
  3. STIVARGA [Suspect]
     Active Substance: REGORAFENIB
     Indication: HEPATOCELLULAR CARCINOMA
     Dosage: 120 MG, QD
     Dates: start: 20190222

REACTIONS (6)
  - Off label use [None]
  - Toxic skin eruption [Recovering/Resolving]
  - Blister [Recovering/Resolving]
  - Erythema [Recovering/Resolving]
  - Toxic skin eruption [None]
  - Inflammation [Recovering/Resolving]

NARRATIVE: CASE EVENT DATE: 201302
